FAERS Safety Report 21609849 (Version 1)
Quarter: 2022Q4

REPORT INFORMATION
  Report Type: Report from Study
  Country: US (occurrence: US)
  Receive Date: 20221117
  Receipt Date: 20221117
  Transmission Date: 20230113
  Serious: No
  Sender: FDA-Public Use
  Company Number: US-LUNDBECK-DKLU3053982

PATIENT

DRUGS (1)
  1. VYEPTI [Suspect]
     Active Substance: EPTINEZUMAB-JJMR
     Indication: Migraine
     Route: 041

REACTIONS (4)
  - Drug ineffective [Unknown]
  - Nausea [Unknown]
  - Infusion site reaction [Unknown]
  - Treatment noncompliance [Unknown]
